FAERS Safety Report 11630037 (Version 3)
Quarter: 2015Q4

REPORT INFORMATION
  Report Type: Spontaneous
  Country: TR (occurrence: TR)
  Receive Date: 20151014
  Receipt Date: 20151028
  Transmission Date: 20160304
  Serious: Yes (Other)
  Sender: FDA-Public Use
  Company Number: PHHY2015TR123776

PATIENT
  Age: 37 Year
  Sex: Male

DRUGS (1)
  1. LEPONEX [Suspect]
     Active Substance: CLOZAPINE
     Indication: BIPOLAR DISORDER
     Dosage: 5 TIMES DAILY
     Route: 048

REACTIONS (5)
  - Off label use [Unknown]
  - Ear disorder [Unknown]
  - Drug ineffective [Unknown]
  - Bipolar disorder [Unknown]
  - Disease progression [Unknown]
